FAERS Safety Report 15373410 (Version 2)
Quarter: 2019Q1

REPORT INFORMATION
  Report Type: Report from Study
  Country: US (occurrence: US)
  Receive Date: 20180912
  Receipt Date: 20190111
  Transmission Date: 20190417
  Serious: Yes (Death, Hospitalization)
  Sender: FDA-Public Use
  Company Number: US-ROCHE-2181881

PATIENT
  Age: 60 Year
  Sex: Male
  Weight: 82.4 kg

DRUGS (19)
  1. IBRUTINIB [Suspect]
     Active Substance: IBRUTINIB
     Indication: MANTLE CELL LYMPHOMA
     Dosage: ON 26/AUG/2018, HE RECEIVED THE MOST RECENT DOSE OF IBRUTINIB PRIOR TO EVENT ONSET.
     Route: 048
     Dates: start: 20180612
  2. METHYLPREDNISOLONE. [Concomitant]
     Active Substance: METHYLPREDNISOLONE
     Route: 065
     Dates: start: 20180902
  3. LIDOCAINE. [Concomitant]
     Active Substance: LIDOCAINE
     Route: 058
  4. PANTOPRAZOLE [Concomitant]
     Active Substance: PANTOPRAZOLE
     Route: 065
  5. ACETAMINOPHEN. [Concomitant]
     Active Substance: ACETAMINOPHEN
     Route: 048
  6. DIPHENHYDRAMINE. [Concomitant]
     Active Substance: DIPHENHYDRAMINE
     Route: 048
  7. SENNA PLUS [Concomitant]
     Active Substance: DOCUSATE SODIUM\SENNOSIDES\SENNOSIDES A AND B
     Route: 065
  8. ZOSYN [Concomitant]
     Active Substance: PIPERACILLIN SODIUM\TAZOBACTAM SODIUM
  9. LEVALBUTEROL. [Concomitant]
     Active Substance: LEVALBUTEROL
     Dosage: INHALATION SOLUTION, NEBULIZER
     Route: 065
  10. OXYCODONE [Concomitant]
     Active Substance: OXYCODONE
     Route: 048
  11. ACYCLOVIR. [Concomitant]
     Active Substance: ACYCLOVIR
     Route: 065
  12. ATOVAQUONE. [Concomitant]
     Active Substance: ATOVAQUONE
     Route: 065
  13. IPRATROPIUM BROMIDE. [Concomitant]
     Active Substance: IPRATROPIUM BROMIDE
     Dosage: INHALATION SOLUTION, NEBULIZER
     Route: 065
  14. VITAMIN B1 [Concomitant]
     Active Substance: THIAMINE HYDROCHLORIDE
     Route: 048
  15. VENETOCLAX. [Suspect]
     Active Substance: VENETOCLAX
     Indication: MANTLE CELL LYMPHOMA
     Dosage: THE INITIAL CYCLE 1 VEN (VENETOCLAX) DOSE RAMP-UP WILL BE: 20 MG DAILY FOR 1 WEEK, 50 MG DAILY FOR W
     Route: 048
     Dates: start: 20180612
  16. ATOVAQUONE. [Concomitant]
     Active Substance: ATOVAQUONE
     Route: 048
  17. ALLOPURINOL. [Concomitant]
     Active Substance: ALLOPURINOL
     Route: 048
  18. HYDROMORPHONE [Concomitant]
     Active Substance: HYDROMORPHONE
     Route: 042
  19. ISAVUCONAZONIUM SULFATE [Concomitant]
     Active Substance: ISAVUCONAZONIUM SULFATE
     Route: 048

REACTIONS (11)
  - Acute kidney injury [Unknown]
  - Hypoglycaemia [Unknown]
  - Cardiac failure [Unknown]
  - Abdominal pain lower [Unknown]
  - Sepsis [Unknown]
  - Tachycardia [Unknown]
  - Death [Fatal]
  - Hypotension [Unknown]
  - Thrombocytopenia [Unknown]
  - Febrile neutropenia [Unknown]
  - Splenic infarction [Unknown]

NARRATIVE: CASE EVENT DATE: 20180902
